FAERS Safety Report 13421893 (Version 4)
Quarter: 2017Q3

REPORT INFORMATION
  Report Type: Spontaneous
  Country: US (occurrence: US)
  Receive Date: 20170410
  Receipt Date: 20170727
  Transmission Date: 20171127
  Serious: No
  Sender: FDA-Public Use
  Company Number: US-PFIZER INC-2017151303

PATIENT
  Age: 78 Year
  Sex: Female
  Weight: 64 kg

DRUGS (6)
  1. PREMARIN [Concomitant]
     Active Substance: ESTROGENS, CONJUGATED
     Dosage: UNK
  2. CELEBREX [Concomitant]
     Active Substance: CELECOXIB
     Indication: BACK PAIN
     Dosage: UNK, AS NEEDED
  3. TRAMADOL. [Concomitant]
     Active Substance: TRAMADOL
     Indication: PAIN
     Dosage: 50 MG, AS NEEDED
  4. LEVOTHYROXINE SODIUM. [Suspect]
     Active Substance: LEVOTHYROXINE SODIUM
     Indication: HYPOTHYROIDISM
     Dosage: UNK, DAILY
     Dates: start: 1985
  5. CELEBREX [Concomitant]
     Active Substance: CELECOXIB
     Indication: MUSCULOSKELETAL STIFFNESS
     Dosage: 200 MG, UNK, EVERY 3 DAYS
  6. TRAMADOL. [Concomitant]
     Active Substance: TRAMADOL
     Indication: MUSCLE SPASMS

REACTIONS (1)
  - Fatigue [Unknown]
